FAERS Safety Report 5335363-6 (Version None)
Quarter: 2007Q1

REPORT INFORMATION
  Report Type: 
  Country: None (occurrence: None)
  Receive Date: 20070327
  Receipt Date: 20061130
  Transmission Date: 20070707
  Serious: Yes (Disabling)
  Sender: FDA-Public Use
  Company Number: HQWYE012101DEC06

PATIENT
  Age: 50 Year
  Sex: Male

DRUGS (1)
  1. PROTONIX [Suspect]
     Indication: DRUG USE FOR UNKNOWN INDICATION
     Dates: start: 20060101, end: 20060501

REACTIONS (1)
  - PANCREATITIS CHRONIC [None]
